FAERS Safety Report 8266240-9 (Version None)
Quarter: 2012Q2

REPORT INFORMATION
  Report Type: 
  Country: None (occurrence: None)
  Receive Date: 20120406
  Receipt Date: 20120402
  Transmission Date: 20120825
  Serious: No
  Sender: FDA-Public Use
  Company Number: US-PFIZER INC-2012084857

PATIENT
  Sex: Male
  Weight: 88.435 kg

DRUGS (2)
  1. NASONEX [Concomitant]
     Indication: SEASONAL ALLERGY
     Dosage: ONE PUFF IN EACH NOSTRIL FIVE TIMES A WEEK
     Route: 045
  2. LIPITOR [Suspect]
     Indication: BLOOD CHOLESTEROL INCREASED
     Dosage: 10 MG DAILY

REACTIONS (1)
  - MYALGIA [None]
